FAERS Safety Report 23940773 (Version 1)
Quarter: 2024Q2

REPORT INFORMATION
  Report Type: Spontaneous
  Country: FR (occurrence: FR)
  Receive Date: 20240605
  Receipt Date: 20240605
  Transmission Date: 20240716
  Serious: Yes (Hospitalization)
  Sender: FDA-Public Use
  Company Number: None

PATIENT
  Age: 39 Year
  Sex: Female
  Weight: 71 kg

DRUGS (3)
  1. METHOTREXATE [Suspect]
     Active Substance: METHOTREXATE
     Indication: Product dispensing error
     Dosage: 10MG 23, 25, 27, 29 APRIL 2024
     Dates: start: 20240422, end: 20240428
  2. LEUCOVORIN CALCIUM [Suspect]
     Active Substance: LEUCOVORIN CALCIUM
  3. METHOTREXATE [Suspect]
     Active Substance: METHOTREXATE
     Indication: Product dispensing error
     Dosage: 1MG/KG 22, 24, 26, 28 APRIL 2024
     Dates: start: 20240422, end: 20240428

REACTIONS (5)
  - Thrombocytopenia [Recovering/Resolving]
  - Rash maculo-papular [Recovering/Resolving]
  - Febrile neutropenia [Recovering/Resolving]
  - Product dispensing error [Not Recovered/Not Resolved]
  - Hepatic cytolysis [Recovered/Resolved]

NARRATIVE: CASE EVENT DATE: 20240401
